FAERS Safety Report 14484650 (Version 5)
Quarter: 2018Q3

REPORT INFORMATION
  Report Type: Spontaneous
  Country: DE (occurrence: DE)
  Receive Date: 20180205
  Receipt Date: 20180913
  Transmission Date: 20181010
  Serious: Yes (Death, Hospitalization)
  Sender: FDA-Public Use
  Company Number: DE-EISAI MEDICAL RESEARCH-EC-2018-035734

PATIENT
  Age: 86 Year
  Sex: Male
  Weight: 55 kg

DRUGS (7)
  1. DONEPEZIL. [Suspect]
     Active Substance: DONEPEZIL
     Indication: SLEEP DISORDER
     Route: 048
     Dates: start: 20171127, end: 20180115
  2. PHENPROCOUMON [Concomitant]
     Active Substance: PHENPROCOUMON
     Indication: ATRIAL FIBRILLATION
     Route: 065
  3. VALDOXAN [Suspect]
     Active Substance: AGOMELATINE
     Indication: SLEEP DISORDER
     Route: 048
     Dates: start: 20171127, end: 20180115
  4. VALSARTAN. [Concomitant]
     Active Substance: VALSARTAN
     Indication: HYPERTENSION
     Route: 065
  5. COLECALCIFEROL [Concomitant]
     Active Substance: CHOLECALCIFEROL
     Indication: PROPHYLAXIS
     Route: 065
  6. AMLODIPINE [Concomitant]
     Active Substance: AMLODIPINE BESYLATE
     Indication: HYPERTENSION
     Route: 065
  7. METAMIZOLE [Concomitant]
     Active Substance: METAMIZOLE
     Indication: PAIN
     Route: 065

REACTIONS (7)
  - Death [Fatal]
  - Fall [Not Recovered/Not Resolved]
  - Aggression [Not Recovered/Not Resolved]
  - Product use in unapproved indication [Fatal]
  - Sleep disorder [Not Recovered/Not Resolved]
  - Restlessness [Not Recovered/Not Resolved]
  - Hallucination [Not Recovered/Not Resolved]

NARRATIVE: CASE EVENT DATE: 201712
